FAERS Safety Report 24752245 (Version 1)
Quarter: 2024Q4

REPORT INFORMATION
  Report Type: Spontaneous
  Country: US (occurrence: US)
  Receive Date: 20241219
  Receipt Date: 20241219
  Transmission Date: 20250114
  Serious: No
  Sender: ALEXION PHARMACEUTICALS
  Company Number: US-AstraZeneca-CH-00767358A

PATIENT

DRUGS (4)
  1. KOSELUGO [Suspect]
     Active Substance: SELUMETINIB
     Indication: Neurofibromatosis
     Dosage: UNK
  2. KOSELUGO [Suspect]
     Active Substance: SELUMETINIB
     Indication: Neurofibroma
     Dosage: UNK
     Route: 048
  3. KOSELUGO [Suspect]
     Active Substance: SELUMETINIB
     Dosage: UNK
  4. KOSELUGO [Suspect]
     Active Substance: SELUMETINIB
     Dosage: UNK
     Route: 048

REACTIONS (2)
  - Spinal pain [Not Recovered/Not Resolved]
  - Scoliosis [Not Recovered/Not Resolved]
